FAERS Safety Report 6148741-2 (Version None)
Quarter: 2009Q2

REPORT INFORMATION
  Report Type: 
  Country: None (occurrence: None)
  Receive Date: 20090406
  Receipt Date: 20090406
  Transmission Date: 20091009
  Serious: Yes (Hospitalization)
  Sender: FDA-Public Use
  Company Number: None

PATIENT
  Age: 16 Year
  Sex: Female
  Weight: 59.8748 kg

DRUGS (2)
  1. CONCERTA [Suspect]
     Indication: ATTENTION DEFICIT/HYPERACTIVITY DISORDER
     Dosage: 36 MG ONCE PER DAY PO
     Route: 048
     Dates: start: 20090303, end: 20090317
  2. CONCERTA [Suspect]
     Indication: DEPRESSION
     Dosage: 36 MG ONCE PER DAY PO
     Route: 048
     Dates: start: 20090303, end: 20090317

REACTIONS (3)
  - DEPRESSION [None]
  - MOOD SWINGS [None]
  - SUICIDE ATTEMPT [None]
